FAERS Safety Report 9663398 (Version 2)
Quarter: 2013Q4

REPORT INFORMATION
  Report Type: Spontaneous
  Country: US (occurrence: US)
  Receive Date: 20131101
  Receipt Date: 20131101
  Transmission Date: 20140711
  Serious: No
  Sender: FDA-Public Use
  Company Number: US-009507513-1208USA003228

PATIENT
  Sex: Male

DRUGS (1)
  1. AFRIN NO DRIP SINUS [Suspect]
     Indication: PRODUCT USED FOR UNKNOWN INDICATION
     Dosage: UNK, ONCE
     Route: 045
     Dates: start: 2012

REACTIONS (1)
  - Headache [Unknown]
